FAERS Safety Report 8455602-2 (Version None)
Quarter: 2012Q2

REPORT INFORMATION
  Report Type: 
  Country: None (occurrence: None)
  Receive Date: 20120621
  Receipt Date: 20120618
  Transmission Date: 20120825
  Serious: No
  Sender: FDA-Public Use
  Company Number: US-BAYER-2012-060999

PATIENT
  Age: 72 Year
  Sex: Male

DRUGS (5)
  1. ALEVE (CAPLET) [Suspect]
     Indication: ARTHRITIS
  2. FLOMAX [Concomitant]
     Indication: PROSTATIC DISORDER
     Dosage: 0.4 MG, QD
     Dates: start: 20090101
  3. ACETAMINOPHEN [Concomitant]
     Indication: ARTHRITIS
     Dosage: 650 MG, BID
     Dates: start: 20090101
  4. PROSCAR [Concomitant]
     Indication: PROSTATIC DISORDER
     Dosage: 5 MG, QD
     Dates: start: 20100101
  5. COLACE [Concomitant]
     Indication: CONSTIPATION PROPHYLAXIS
     Dosage: 100 MG, BID
     Dates: start: 20100101

REACTIONS (1)
  - DRUG INEFFECTIVE [None]
